FAERS Safety Report 18536921 (Version 1)
Quarter: 2020Q4

REPORT INFORMATION
  Report Type: Spontaneous
  Country: US (occurrence: US)
  Receive Date: 20201124
  Receipt Date: 20201124
  Transmission Date: 20210114
  Serious: Yes (Hospitalization, Congenital Anomaly, Other)
  Sender: FDA-Public Use
  Company Number: US-LUPIN PHARMACEUTICALS INC.-2020-09209

PATIENT
  Sex: Male
  Weight: 1.4 kg

DRUGS (2)
  1. POLYGYNAX [NEOMYCIN SULFATE;NYSTATIN;POLYMYXIN B SULFATE] [Suspect]
     Active Substance: NEOMYCIN\NYSTATIN\POLYMYXIN B SULFATE
     Indication: VAGINAL DISCHARGE
     Dosage: UNK (60 CAPSULES FROM 8TH WEEK OF GESTATION UNTIL DELIVERY)
     Route: 064
  2. BETAMETHASONE. [Suspect]
     Active Substance: BETAMETHASONE
     Indication: PRODUCT USED FOR UNKNOWN INDICATION
     Dosage: 12 MILLIGRAM, UNK (RECEIVED 11 HOURS PRIOR TO DELIVERY)
     Route: 064

REACTIONS (11)
  - Chordee [Recovering/Resolving]
  - Hypertension [Recovering/Resolving]
  - Hypospadias [Recovered/Resolved]
  - Adrenogenital syndrome [Recovered/Resolved]
  - Scrotal disorder [Unknown]
  - Low birth weight baby [Unknown]
  - Blood corticotrophin abnormal [Recovered/Resolved]
  - Premature baby [Unknown]
  - Foetal exposure during pregnancy [Unknown]
  - Male reproductive tract disorder [Recovering/Resolving]
  - Micropenis [Recovering/Resolving]
